FAERS Safety Report 8340371-7 (Version None)
Quarter: 2012Q2

REPORT INFORMATION
  Report Type: 
  Country: None (occurrence: None)
  Receive Date: 20120507
  Receipt Date: 20120501
  Transmission Date: 20120825
  Serious: No
  Sender: FDA-Public Use
  Company Number: US-PFIZER INC-2012107886

PATIENT
  Sex: Male
  Weight: 86.168 kg

DRUGS (3)
  1. NICOTROL [Suspect]
     Indication: SMOKING CESSATION THERAPY
     Dosage: UNK, 6 CARTRIDGES DAILY
     Route: 055
     Dates: start: 20120427
  2. NABUMETONE [Concomitant]
     Indication: ARTHRITIS
     Dosage: 150 MG, 2X/DAY
  3. FISH OIL [Concomitant]
     Dosage: UNK

REACTIONS (4)
  - INSOMNIA [None]
  - FRUSTRATION [None]
  - FEELING JITTERY [None]
  - DYSGEUSIA [None]
